FAERS Safety Report 10039408 (Version 3)
Quarter: 2014Q3

REPORT INFORMATION
  Report Type: Spontaneous
  Country: US (occurrence: None)
  Receive Date: 20140318
  Receipt Date: 20140905
  Transmission Date: 20150326
  Serious: Yes (Hospitalization)
  Sender: FDA-Public Use
  Company Number: 2014CT000019

PATIENT
  Age: 61 Year
  Sex: Female

DRUGS (8)
  1. VITAMIN B COMPLEX [Concomitant]
     Active Substance: CYANOCOBALAMIN\DEXPANTHENOL\NIACINAMIDE\PYRIDOXINE HYDROCHLORIDE\RIBOFLAVIN 5^-PHOSPHATE SODIUM\THIAMINE HYDROCHLORIDE\VITAMIN B COMPLEX
  2. TRAMADOL [Concomitant]
     Active Substance: TRAMADOL
  3. LANTUS [Concomitant]
     Active Substance: INSULIN GLARGINE
  4. TRIAMTERENE. [Concomitant]
     Active Substance: TRIAMTERENE
  5. POTASSIUM CHLORIDE. [Concomitant]
     Active Substance: POTASSIUM CHLORIDE
  6. KORLYM [Suspect]
     Active Substance: MIFEPRISTONE
     Indication: CUSHING^S SYNDROME
     Route: 048
     Dates: start: 20131213, end: 20140211
  7. ZETIA [Concomitant]
     Active Substance: EZETIMIBE
  8. FUROSEMIDE. [Concomitant]
     Active Substance: FUROSEMIDE

REACTIONS (5)
  - Myocardial infarction [None]
  - Wrong technique in drug usage process [None]
  - Procedural complication [None]
  - Drug dose omission [None]
  - Blood glucose decreased [None]

NARRATIVE: CASE EVENT DATE: 201407
